FAERS Safety Report 4506365-4 (Version None)
Quarter: 2004Q4

REPORT INFORMATION
  Report Type: 
  Country: None (occurrence: None)
  Receive Date: 20041025
  Receipt Date: 20031212
  Transmission Date: 20050328
  Serious: Yes (Other)
  Sender: FDA-Public Use
  Company Number: US-JNJFOC-2003110312

PATIENT
  Age: 71 Year
  Sex: Female
  Weight: 73.0291 kg

DRUGS (5)
  1. REMICADE [Suspect]
     Indication: RHEUMATOID ARTHRITIS
     Dosage: INTRAVENOUS
     Route: 042
     Dates: start: 20010501
  2. METHOTREXATE [Concomitant]
  3. PLACQUENIL (HYDROXYCHLOROQUINE PHOSPATE) [Concomitant]
  4. NAPROXEN [Concomitant]
  5. HYZAAR [Concomitant]

REACTIONS (2)
  - BLOOD PRESSURE INCREASED [None]
  - UNEXPECTED THERAPEUTIC DRUG EFFECT [None]
